FAERS Safety Report 6392274-5 (Version None)
Quarter: 2009Q4

REPORT INFORMATION
  Report Type: 
  Country: None (occurrence: None)
  Receive Date: 20091007
  Receipt Date: 20090929
  Transmission Date: 20100525
  Serious: Yes (Hospitalization)
  Sender: FDA-Public Use
  Company Number: US-GENENTECH-288341

PATIENT
  Age: 67 Year
  Sex: Male
  Weight: 90.703 kg

DRUGS (7)
  1. AVASTIN [Suspect]
     Indication: COLON CANCER
     Dosage: UNK
     Route: 065
     Dates: start: 20090612
  2. ELOXATIN [Suspect]
     Indication: COLON CANCER
     Dosage: UNK
     Route: 042
     Dates: start: 20090410, end: 20090902
  3. CAPECITABINE [Suspect]
     Indication: COLON CANCER
     Dosage: UNK
     Route: 048
     Dates: start: 20090410
  4. PALONOSETRON [Concomitant]
     Indication: NAUSEA
  5. ROPINIROLE [Concomitant]
     Indication: PARKINSON'S DISEASE
     Dosage: UNK
     Dates: start: 20090201
  6. CARBIDOPA-LEVODOPA [Concomitant]
     Indication: PARKINSON'S DISEASE
     Dosage: UNK
     Dates: start: 20090201
  7. ALPRAZOLAM [Concomitant]
     Indication: ANXIETY
     Dosage: UNK
     Dates: start: 20090401

REACTIONS (7)
  - DYSAESTHESIA [None]
  - DYSPHAGIA [None]
  - EYELID PTOSIS [None]
  - LACRIMATION INCREASED [None]
  - LIP SWELLING [None]
  - TRANSIENT ISCHAEMIC ATTACK [None]
  - TREMOR [None]
